FAERS Safety Report 18580953 (Version 2)
Quarter: 2020Q4

REPORT INFORMATION
  Report Type: Spontaneous
  Country: AU (occurrence: AU)
  Receive Date: 20201204
  Receipt Date: 20201208
  Transmission Date: 20210114
  Serious: Yes (Death, Congenital Anomaly, Other)
  Sender: FDA-Public Use
  Company Number: AU-PFIZER INC-2020479139

PATIENT
  Sex: Male
  Weight: .79 kg

DRUGS (2)
  1. SULFASALAZINE. [Suspect]
     Active Substance: SULFASALAZINE
     Indication: CROHN^S DISEASE
     Dosage: 2 G, DAILY
     Route: 064
  2. PREDNISOLONE. [Suspect]
     Active Substance: PREDNISOLONE
     Indication: CROHN^S DISEASE
     Dosage: 12 MG, DAILY
     Route: 064

REACTIONS (8)
  - Teratogenicity [Fatal]
  - Talipes [Fatal]
  - Premature baby [Unknown]
  - Pulmonary hypoplasia [Fatal]
  - Potter^s syndrome [Fatal]
  - Stillbirth [Fatal]
  - Renal aplasia [Fatal]
  - Maternal exposure during pregnancy [Fatal]
